FAERS Safety Report 9305000 (Version 3)
Quarter: 2015Q1

REPORT INFORMATION
  Report Type: Spontaneous
  Country: US (occurrence: US)
  Receive Date: 20130523
  Receipt Date: 20150206
  Transmission Date: 20150721
  Serious: Yes (Hospitalization, Other)
  Sender: FDA-Public Use
  Company Number: US-AMGEN-USASP2013035871

PATIENT
  Age: 10 Year
  Sex: Female

DRUGS (2)
  1. CHOLECALCIFEROL [Concomitant]
     Active Substance: CHOLECALCIFEROL
     Dosage: UNK
  2. XGEVA [Suspect]
     Active Substance: DENOSUMAB
     Indication: BONE GIANT CELL TUMOUR
     Dosage: 120 MG, QWK
     Route: 058
     Dates: start: 20101026

REACTIONS (12)
  - Parathyroid hormone-related protein abnormal [Unknown]
  - Acute kidney injury [Unknown]
  - Hypophosphataemia [Unknown]
  - Vomiting [Unknown]
  - Osteopetrosis [Unknown]
  - Hypercalcaemia [Recovered/Resolved]
  - Blood creatinine increased [Recovered/Resolved]
  - Hypocalcaemia [Unknown]
  - Nausea [Unknown]
  - Blood alkaline phosphatase decreased [Unknown]
  - Blood urea increased [Recovered/Resolved]
  - Vitamin D decreased [Unknown]

NARRATIVE: CASE EVENT DATE: 20101109
